FAERS Safety Report 8176145-X (Version None)
Quarter: 2012Q1

REPORT INFORMATION
  Report Type: 
  Country: None (occurrence: None)
  Receive Date: 20120301
  Receipt Date: 20120220
  Transmission Date: 20120608
  Serious: Yes (Life-Threatening)
  Sender: FDA-Public Use
  Company Number: KR-GENZYME-THYM-1003112

PATIENT
  Sex: Male
  Weight: 63 kg

DRUGS (5)
  1. FLUDARABINE PHOSPHATE [Concomitant]
     Indication: BONE MARROW CONDITIONING REGIMEN
     Dosage: 30 MG/KG, QD
     Route: 065
     Dates: start: 20111227, end: 20120101
  2. METHYLPREDNISOLONE [Concomitant]
     Indication: PROPHYLAXIS
     Dosage: 2 MG/KG, QD
     Route: 065
     Dates: start: 20111230, end: 20120105
  3. ENTECAVIR [Concomitant]
     Indication: HEPATITIS B SURFACE ANTIGEN POSITIVE
     Dosage: UNK
     Route: 065
  4. MICAFUNGIN [Concomitant]
     Indication: PROPHYLAXIS
     Dosage: 50 MG, QD
     Route: 065
     Dates: start: 20111226, end: 20120111
  5. THYMOGLOBULIN [Suspect]
     Indication: BONE MARROW CONDITIONING REGIMEN
     Dosage: 3 MG/KG, QD
     Route: 042
     Dates: start: 20111230, end: 20111230

REACTIONS (2)
  - ASPARTATE AMINOTRANSFERASE INCREASED [None]
  - ALANINE AMINOTRANSFERASE INCREASED [None]
